FAERS Safety Report 9997722 (Version 4)
Quarter: 2014Q2

REPORT INFORMATION
  Report Type: Spontaneous
  Country: JP (occurrence: JP)
  Receive Date: 20140311
  Receipt Date: 20140523
  Transmission Date: 20141212
  Serious: Yes (Other)
  Sender: FDA-Public Use
  Company Number: JP-ASTRAZENECA-2014SE11783

PATIENT
  Age: 71 Year
  Sex: Male

DRUGS (3)
  1. NEXIUM [Suspect]
     Indication: GASTROOESOPHAGEAL REFLUX DISEASE
     Route: 048
     Dates: start: 20140208, end: 20140210
  2. GASMOTIN [Concomitant]
     Dosage: DOSE UNKNOWN
     Route: 048
     Dates: start: 20140208, end: 20140210
  3. FLIVAS [Concomitant]
     Dosage: DOSE UNKNOWN
     Route: 048

REACTIONS (9)
  - Bile duct cancer [Unknown]
  - Haematuria [Unknown]
  - Blood bilirubin increased [Unknown]
  - Burning sensation [Unknown]
  - Urticaria [Not Recovered/Not Resolved]
  - Hepatic function abnormal [Recovering/Resolving]
  - Vomiting [Unknown]
  - Jaundice [Not Recovered/Not Resolved]
  - Pruritus [Unknown]
